FAERS Safety Report 5966379-4 (Version None)
Quarter: 2008Q4

REPORT INFORMATION
  Report Type: 
  Country: None (occurrence: None)
  Receive Date: 20081125
  Receipt Date: 20081117
  Transmission Date: 20090506
  Serious: Yes (Death, Hospitalization)
  Sender: FDA-Public Use
  Company Number: JP-AMGEN-US318834

PATIENT
  Sex: Female
  Weight: 100 kg

DRUGS (16)
  1. ENBREL [Suspect]
     Indication: RHEUMATOID ARTHRITIS
     Dosage: SOLUTION FOR INJECTION; 25 MG 2 X PER 1 WEEK
     Route: 058
     Dates: start: 20080730
  2. PROGRAF [Suspect]
     Indication: RHEUMATOID ARTHRITIS
     Route: 048
     Dates: start: 20050101
  3. PREDONINE [Suspect]
     Indication: RHEUMATOID ARTHRITIS
     Route: 048
  4. PREDONINE [Suspect]
     Route: 048
     Dates: start: 20040101
  5. PROCYLIN [Concomitant]
     Route: 048
  6. RIMATIL [Concomitant]
     Route: 048
  7. CLINORIL [Concomitant]
     Route: 048
  8. THIATON [Concomitant]
     Route: 048
  9. NEUROTROPIN [Concomitant]
     Dosage: NOT SPECIFIED
     Route: 048
  10. ITRIZOLE [Concomitant]
     Dosage: SYRUP DOSE FORM; DOSE AND FREQUENCY NOT SPECIFIED
     Route: 048
  11. FERROMIA [Concomitant]
     Route: 048
  12. JUVELA [Concomitant]
     Route: 048
  13. RENIVACE [Concomitant]
     Route: 048
  14. GASTROM [Concomitant]
     Dosage: DOSE AND FREQUENCY NOT SPECIFIED
     Route: 048
  15. RABEPRAZOLE SODIUM [Concomitant]
     Route: 048
  16. MUCOSTA [Concomitant]
     Route: 048

REACTIONS (2)
  - PNEUMONIA [None]
  - SEPTIC SHOCK [None]
